FAERS Safety Report 23190158 (Version 6)
Quarter: 2024Q1

REPORT INFORMATION
  Report Type: Spontaneous
  Country: US (occurrence: US)
  Receive Date: 20231116
  Receipt Date: 20240214
  Transmission Date: 20240409
  Serious: No
  Sender: FDA-Public Use
  Company Number: US-BIOGEN-2023BI01234924

PATIENT
  Age: 57 Year
  Sex: Female

DRUGS (7)
  1. VUMERITY [Suspect]
     Active Substance: DIROXIMEL FUMARATE
     Indication: Multiple sclerosis
     Dosage: TAKE 1 CAPSULE (231MG) BY MOUTH TWICE DAILY FOR THE FIRST 7 DAYS
     Route: 050
     Dates: start: 20231111
  2. VUMERITY [Suspect]
     Active Substance: DIROXIMEL FUMARATE
     Dosage: THEN TAKE 2 CAPSULES (462MG) TWICE DAILY THEREAFTER
     Route: 050
  3. VUMERITY [Suspect]
     Active Substance: DIROXIMEL FUMARATE
     Dosage: REDUCED HER DOSES OF VUMERITY BY HALF
     Route: 050
     Dates: end: 20240108
  4. VUMERITY [Suspect]
     Active Substance: DIROXIMEL FUMARATE
     Dosage: THEN TAKE 2 CAPSULES (462MG) TWICE DAILY THEREAFTER
     Route: 050
     Dates: start: 20240109
  5. ALPRAZOLAM [Concomitant]
     Active Substance: ALPRAZOLAM
     Route: 050
  6. ALEVE [Concomitant]
     Active Substance: NAPROXEN SODIUM
     Route: 050
  7. BUPROPION HYDROCHLORIDE [Concomitant]
     Active Substance: BUPROPION HYDROCHLORIDE
     Route: 050

REACTIONS (8)
  - Intentional product misuse [Recovered/Resolved]
  - Dizziness [Not Recovered/Not Resolved]
  - Cerebral atrophy [Unknown]
  - Balance disorder [Unknown]
  - Weight decreased [Unknown]
  - COVID-19 [Unknown]
  - Hepatic enzyme increased [Unknown]
  - Flushing [Recovered/Resolved]

NARRATIVE: CASE EVENT DATE: 20231101
